FAERS Safety Report 6151243-0 (Version None)
Quarter: 2009Q2

REPORT INFORMATION
  Report Type: 
  Country: None (occurrence: None)
  Receive Date: 20090407
  Receipt Date: 20090319
  Transmission Date: 20091009
  Serious: Yes (Life-Threatening)
  Sender: FDA-Public Use
  Company Number: PVS4-19-MAR-2009

PATIENT
  Age: 29 Year
  Sex: Female
  Weight: 63 kg

DRUGS (6)
  1. SEROMYCIN [Suspect]
     Indication: PULMONARY TUBERCULOSIS
     Dosage: 750 MG, (1/D), ORAL
     Route: 048
     Dates: start: 20070731, end: 20080513
  2. PYRAZINAMIDE (PYRAZINADMIDE) [Concomitant]
  3. OFLOXACIN [Concomitant]
  4. EMB (ETHAMBUTOL DIHYDROCHLORIDE) [Concomitant]
  5. KANAMYCIN [Concomitant]
  6. ETHIONAMIDE [Concomitant]

REACTIONS (2)
  - AGGRESSION [None]
  - CONFUSIONAL STATE [None]
